FAERS Safety Report 8778204 (Version 3)
Quarter: 2012Q4

REPORT INFORMATION
  Report Type: 
  Country: US (occurrence: US)
  Receive Date: 20120911
  Receipt Date: 20121226
  Transmission Date: 20130627
  Serious: Yes (Hospitalization)
  Sender: FDA-Public Use
  Company Number: US-BAYER-2012-093783

PATIENT
  Age: 21 Year
  Sex: Female
  Weight: 117.91 kg

DRUGS (2)
  1. OCELLA [Suspect]
     Indication: ACNE
     Dosage: UNK
     Dates: start: 201012, end: 20110106
  2. NSAID^S [Concomitant]
     Dosage: UNK UNK, PRN

REACTIONS (6)
  - Pulmonary embolism [None]
  - Deep vein thrombosis [None]
  - Pain [None]
  - Depression [None]
  - Anxiety [None]
  - Anhedonia [None]
